FAERS Safety Report 9066176 (Version 2)
Quarter: 2013Q2

REPORT INFORMATION
  Report Type: Spontaneous
  Country: US (occurrence: US)
  Receive Date: 20130214
  Receipt Date: 20130418
  Transmission Date: 20140414
  Serious: Yes (Other)
  Sender: FDA-Public Use
  Company Number: US-ASTELLAS-2013US000394

PATIENT
  Sex: Male
  Weight: 82 kg

DRUGS (12)
  1. VESICARE [Suspect]
     Indication: HYPERTONIC BLADDER
     Dosage: UNK
     Route: 048
  2. VESICARE [Suspect]
     Dosage: 5 MG, UNKNOWN/D
     Route: 048
     Dates: start: 201202
  3. VESICARE [Suspect]
     Dosage: 5 MG, UID/QD
     Route: 048
     Dates: start: 20120430
  4. DOXAZOSIN [Concomitant]
     Indication: PRODUCT USED FOR UNKNOWN INDICATION
     Dosage: 1 TAB, UID/QD
     Route: 065
  5. NIFEDIPINE [Concomitant]
     Indication: PRODUCT USED FOR UNKNOWN INDICATION
     Dosage: 60 MG, UID/QD
     Route: 065
  6. METOPROLOL [Concomitant]
     Indication: PRODUCT USED FOR UNKNOWN INDICATION
     Dosage: 1 TAB, UID/QD
     Route: 065
  7. OMEPRAZOLE [Concomitant]
     Indication: PRODUCT USED FOR UNKNOWN INDICATION
     Dosage: 40 MG, UID/QD
     Route: 065
  8. POTASSIUM CHLORIDE [Concomitant]
     Indication: PRODUCT USED FOR UNKNOWN INDICATION
     Dosage: 20 MEQ, UID/QD
     Route: 065
  9. ALLOPURINOL [Concomitant]
     Indication: PRODUCT USED FOR UNKNOWN INDICATION
     Dosage: 100 MG, UID/QD
     Route: 065
  10. GLIPIZIDE/METFORMIN [Concomitant]
     Indication: PRODUCT USED FOR UNKNOWN INDICATION
     Dosage: 5/500 BID
     Route: 065
  11. SIMVASTATIN [Concomitant]
     Indication: PRODUCT USED FOR UNKNOWN INDICATION
     Dosage: 20 MG, UID/QD
     Route: 065
  12. DITROPAN XL [Concomitant]
     Indication: PRODUCT USED FOR UNKNOWN INDICATION
     Dosage: 15 MG, UID/QD
     Route: 048

REACTIONS (26)
  - Blindness unilateral [Recovered/Resolved]
  - Eyelid ptosis [Recovered/Resolved]
  - Cerebrovascular accident [Unknown]
  - Cerebral haemorrhage [Unknown]
  - Brain neoplasm [Unknown]
  - Hydronephrosis [Unknown]
  - Glaucoma [Unknown]
  - Cataract [Unknown]
  - Gout [Unknown]
  - Hyperlipidaemia [Unknown]
  - Diverticulitis [Unknown]
  - Adenoidectomy [Unknown]
  - Weight increased [Unknown]
  - Visual impairment [Unknown]
  - Sinus operation [Unknown]
  - Hypercholesterolaemia [Unknown]
  - Neck pain [Unknown]
  - Back pain [Unknown]
  - Tremor [Unknown]
  - Arthritis [Unknown]
  - Night sweats [Unknown]
  - Oedema peripheral [Unknown]
  - Nausea [Unknown]
  - Dyspepsia [Unknown]
  - Constipation [Unknown]
  - Fatigue [Unknown]
